FAERS Safety Report 18444258 (Version 1)
Quarter: 2020Q4

REPORT INFORMATION
  Report Type: Spontaneous
  Country: FR (occurrence: FR)
  Receive Date: 20201030
  Receipt Date: 20201030
  Transmission Date: 20210114
  Serious: Yes (Hospitalization, Other)
  Sender: FDA-Public Use
  Company Number: FR-AMGEN-FRASP2020174584

PATIENT
  Age: 71 Year
  Sex: Female
  Weight: 80 kg

DRUGS (2)
  1. KYPROLIS [Suspect]
     Active Substance: CARFILZOMIB
     Indication: PLASMA CELL MYELOMA
     Dosage: 56 MILLIGRAM/SQ. METER
     Route: 042
     Dates: start: 20200901
  2. PRIVIGEN [Concomitant]
     Active Substance: HUMAN IMMUNOGLOBULIN G
     Indication: POLYNEUROPATHY
     Dosage: 2000 MILLIGRAM/KILOGRAM
     Route: 042
     Dates: start: 2008

REACTIONS (2)
  - Demyelinating polyneuropathy [Not Recovered/Not Resolved]
  - Condition aggravated [Not Recovered/Not Resolved]

NARRATIVE: CASE EVENT DATE: 20200907
